FAERS Safety Report 4698803-1 (Version None)
Quarter: 2005Q2

REPORT INFORMATION
  Report Type: 
  Country: None (occurrence: None)
  Receive Date: 20050621
  Receipt Date: 20050204
  Transmission Date: 20051028
  Serious: Yes (Other)
  Sender: FDA-Public Use
  Company Number: PHEH2005US01688

PATIENT
  Age: 47 Year
  Sex: Female

DRUGS (1)
  1. EXELON [Suspect]
     Indication: AMNESIA
     Dosage: 1.5 MG, BID, ORAL
     Route: 048
     Dates: start: 20040201

REACTIONS (1)
  - BLOOD PRESSURE DECREASED [None]
